FAERS Safety Report 23244915 (Version 1)
Quarter: 2023Q4

REPORT INFORMATION
  Report Type: Spontaneous
  Country: CO (occurrence: CO)
  Receive Date: 20231130
  Receipt Date: 20231130
  Transmission Date: 20240109
  Serious: Yes (Hospitalization, Other)
  Sender: FDA-Public Use
  Company Number: CO-002147023-NVSC2022CO136255

PATIENT
  Sex: Female
  Weight: 48.5 kg

DRUGS (5)
  1. FEMARA [Suspect]
     Active Substance: LETROZOLE
     Dosage: 2.5 MG, QD (BY MOUTH) (START: END OF JUN 2022)
     Route: 048
     Dates: start: 20220607
  2. FEMARA [Suspect]
     Active Substance: LETROZOLE
     Indication: Breast cancer
     Dosage: UNK UNK, QD
     Route: 048
  3. KISQALI [Suspect]
     Active Substance: RIBOCICLIB
     Indication: Hormone receptor positive HER2 negative breast cancer
     Dosage: 600 MG, QD
     Route: 048
  4. KISQALI [Suspect]
     Active Substance: RIBOCICLIB
     Dosage: 600 MG, QD (START: BEGINNING OF JUN 2022, STOP DATE: 11 AUG)
     Route: 048
     Dates: start: 202206
  5. ZOLEDRONIC ACID [Suspect]
     Active Substance: ZOLEDRONIC ACID
     Indication: Product used for unknown indication
     Dosage: UNK, Q3W (EVERY 21 DAYS)
     Route: 065

REACTIONS (7)
  - Spinal disorder [Unknown]
  - Malignant neoplasm progression [Unknown]
  - Hormone receptor positive HER2 negative breast cancer [Unknown]
  - Metastases to bone [Unknown]
  - Herpes virus infection [Recovered/Resolved]
  - Haematoma [Recovered/Resolved]
  - Urinary tract infection [Recovered/Resolved]
